FAERS Safety Report 10121375 (Version 1)
Quarter: 2014Q2

REPORT INFORMATION
  Report Type: Spontaneous
  Country: HR (occurrence: HR)
  Receive Date: 20140425
  Receipt Date: 20140425
  Transmission Date: 20141212
  Serious: Yes (Hospitalization, Other)
  Sender: FDA-Public Use
  Company Number: PHHY2014HR049491

PATIENT
  Sex: 0

DRUGS (2)
  1. POTASSIUM CHLORIDE [Suspect]
  2. ACE INHIBITORS [Interacting]

REACTIONS (3)
  - Arrhythmia [Unknown]
  - Hyperkalaemia [Unknown]
  - Drug interaction [Unknown]
